FAERS Safety Report 9288646 (Version 1)
Quarter: 2013Q2

REPORT INFORMATION
  Report Type: Report from Study
  Country: AR (occurrence: AR)
  Receive Date: 20130514
  Receipt Date: 20130514
  Transmission Date: 20140414
  Serious: Yes (Other)
  Sender: FDA-Public Use
  Company Number: PHHY2013AR047685

PATIENT
  Sex: Female

DRUGS (2)
  1. EXFORGE [Suspect]
     Indication: HYPERTENSION
     Dosage: 1 DF (160/10 MG), DAILY
     Route: 048
     Dates: end: 20130510
  2. EXFORGE [Suspect]
     Dosage: 0.5 DF (160/10 MG), DAILY
     Route: 048
     Dates: start: 20130510

REACTIONS (5)
  - Blood pressure decreased [Recovering/Resolving]
  - Fluid retention [Recovering/Resolving]
  - Local swelling [Recovering/Resolving]
  - Tachycardia [Recovering/Resolving]
  - Wrong technique in drug usage process [Not Recovered/Not Resolved]
